FAERS Safety Report 10050131 (Version 1)
Quarter: 2014Q1

REPORT INFORMATION
  Report Type: Spontaneous
  Country: US (occurrence: None)
  Receive Date: 20140331
  Receipt Date: 20140331
  Transmission Date: 20141002
  Serious: Yes (Hospitalization)
  Sender: FDA-Public Use
  Company Number: None

PATIENT
  Age: 83 Year
  Sex: Male
  Weight: 70.9 kg

DRUGS (12)
  1. BENDAMUSTINE HYDROCHLORIDE [Suspect]
  2. RITUXIMAB [Suspect]
  3. HCTZ [Concomitant]
  4. ASPRIN [Concomitant]
  5. ATROVENT HFA [Concomitant]
  6. COREG [Concomitant]
  7. FORTAMET [Concomitant]
  8. GABAPENTIN [Concomitant]
  9. GLIPIZIDE [Concomitant]
  10. LIPITOR [Concomitant]
  11. LISINOPRIL [Concomitant]
  12. NEXIUM [Concomitant]

REACTIONS (1)
  - Squamous cell carcinoma of skin [None]
